FAERS Safety Report 17960000 (Version 10)
Quarter: 2020Q3

REPORT INFORMATION
  Report Type: Report from Study
  Country: None (occurrence: IL)
  Receive Date: 20200630
  Receipt Date: 20200924
  Transmission Date: 20201103
  Serious: Yes (Hospitalization, Other)
  Sender: FDA-Public Use
  Company Number: IL-ABBVIE-20K-082-3464055-00

PATIENT
  Sex: Female

DRUGS (3)
  1. DUODOPA [Suspect]
     Active Substance: CARBIDOPA\LEVODOPA
     Dosage: CURRENT: MORNING 3.5 ML, CONT. DAY DOSE 2.6 ML/HOUR, CONT.  ND 3 ML/HOUR, ED 1.5 ML
     Route: 050
  2. DUODOPA [Suspect]
     Active Substance: CARBIDOPA\LEVODOPA
     Indication: PARKINSON^S DISEASE
     Route: 050
     Dates: start: 20161119
  3. DUODOPA [Suspect]
     Active Substance: CARBIDOPA\LEVODOPA
     Dosage: CURRENT: MORNING 3.5 ML, CONTINUOUS RATE 2.6 ML/HOUR, ED 1.5 ML
     Route: 050

REACTIONS (8)
  - Constipation [Recovered/Resolved]
  - Skin disorder [Not Recovered/Not Resolved]
  - Skin disorder [Recovered/Resolved]
  - Dyspnoea [Recovered/Resolved]
  - Stoma site discharge [Recovered/Resolved]
  - Volvulus [Unknown]
  - Device difficult to use [Unknown]
  - Volvulus [Recovered/Resolved]

NARRATIVE: CASE EVENT DATE: 2020
